FAERS Safety Report 4466356-9 (Version None)
Quarter: 2004Q4

REPORT INFORMATION
  Report Type: 
  Country: None (occurrence: None)
  Receive Date: 20041005
  Receipt Date: 20040924
  Transmission Date: 20050328
  Serious: Yes (Hospitalization)
  Sender: FDA-Public Use
  Company Number: FR-BRISTOL-MYERS SQUIBB COMPANY-12712220

PATIENT
  Age: 75 Year
  Sex: Female

DRUGS (6)
  1. APROVEL TABS 75 MG [Suspect]
     Route: 048
     Dates: start: 20030101
  2. LEVOTHYROX [Suspect]
     Dosage: 1 DOSE PER DAY
     Route: 048
     Dates: start: 20020101
  3. KARDEGIC [Suspect]
     Dosage: 1 DOSE PER DAY
     Route: 048
     Dates: start: 20030901
  4. LANSOPRAZOLE [Suspect]
     Route: 048
     Dates: start: 20030901, end: 20031109
  5. AMIODARONE [Suspect]
     Route: 048
     Dates: start: 20030101
  6. BISOPROLOL FUMARATE [Suspect]
     Indication: HYPERTENSION
     Dosage: 1 DOSE PER DAY
     Route: 048
     Dates: start: 20030101

REACTIONS (2)
  - COLITIS [None]
  - COLITIS COLLAGENOUS [None]
